FAERS Safety Report 16669521 (Version 4)
Quarter: 2019Q3

REPORT INFORMATION
  Report Type: Spontaneous
  Country: US (occurrence: US)
  Receive Date: 20190805
  Receipt Date: 20190918
  Transmission Date: 20191004
  Serious: Yes (Hospitalization)
  Sender: FDA-Public Use
  Company Number: US-ACTELION-A-US2019-193899

PATIENT
  Sex: Male
  Weight: 94.33 kg

DRUGS (2)
  1. UPTRAVI [Suspect]
     Active Substance: SELEXIPAG
     Indication: PULMONARY ARTERIAL HYPERTENSION
     Dosage: 1600 MCG, BID
     Route: 048
  2. ADEMPAS [Concomitant]
     Active Substance: RIOCIGUAT

REACTIONS (15)
  - Hypotension [Unknown]
  - Vomiting [Unknown]
  - Decreased appetite [Unknown]
  - Nausea [Unknown]
  - Peripheral swelling [Unknown]
  - Dyspnoea [Unknown]
  - Pyrexia [Unknown]
  - Fluid retention [Unknown]
  - Acute respiratory failure [Unknown]
  - Swelling [Unknown]
  - Sepsis [Unknown]
  - Asthenia [Unknown]
  - Influenza like illness [Unknown]
  - Pain in extremity [Unknown]
  - Depression [Unknown]
